FAERS Safety Report 7568131-5 (Version None)
Quarter: 2011Q2

REPORT INFORMATION
  Report Type: 
  Country: None (occurrence: None)
  Receive Date: 20110616
  Receipt Date: 20110601
  Transmission Date: 20111010
  Serious: Yes (Life-Threatening)
  Sender: FDA-Public Use
  Company Number: DSA_46802_2011

PATIENT
  Sex: Male

DRUGS (5)
  1. BISOPROLOL FUMARATE [Suspect]
     Indication: HYPERTENSION
     Dosage: (5 MG QD ORAL), (1.25 MG ORAL)
     Route: 048
     Dates: start: 20110301
  2. BISOPROLOL FUMARATE [Suspect]
     Indication: HYPERTENSION
     Dosage: (5 MG QD ORAL), (1.25 MG ORAL)
     Route: 048
     Dates: start: 20110305, end: 20110308
  3. TAMBOCOR [Concomitant]
  4. DILTIAZEM HCL [Suspect]
     Indication: HYPERTENSION
     Dosage: (100 MG QD ORAL)
     Route: 048
     Dates: start: 20110112, end: 20110114
  5. NITRODERM [Concomitant]

REACTIONS (7)
  - BLOOD PRESSURE DECREASED [None]
  - SENSATION OF HEAVINESS [None]
  - HYPOTENSION [None]
  - CARDIAC DISORDER [None]
  - MALAISE [None]
  - ATRIAL FIBRILLATION [None]
  - BRADYCARDIA [None]
